FAERS Safety Report 23438752 (Version 2)
Quarter: 2024Q1

REPORT INFORMATION
  Report Type: Spontaneous
  Country: US (occurrence: US)
  Receive Date: 20240124
  Receipt Date: 20240314
  Transmission Date: 20240409
  Serious: No
  Sender: FDA-Public Use
  Company Number: US-SA-SAC20240119001046

PATIENT
  Age: 53 Year
  Sex: Male

DRUGS (1)
  1. DUPIXENT [Suspect]
     Active Substance: DUPILUMAB
     Indication: Dermatitis atopic
     Dosage: 300 MG, QOW
     Route: 058
     Dates: start: 202301

REACTIONS (2)
  - Influenza [Unknown]
  - COVID-19 [Recovered/Resolved]

NARRATIVE: CASE EVENT DATE: 20240101
